FAERS Safety Report 8494508-X (Version None)
Quarter: 2012Q3

REPORT INFORMATION
  Report Type: 
  Country: None (occurrence: None)
  Receive Date: 20120709
  Receipt Date: 20120412
  Transmission Date: 20120928
  Serious: No
  Sender: FDA-Public Use
  Company Number: US-COVIDIEN/TYCO HEALTHCARE/MALLINCKRODT-T201201465

PATIENT
  Sex: Female

DRUGS (6)
  1. ALPRAZOLAM [Concomitant]
     Indication: ANXIETY
     Dosage: 0.5 MG
  2. CISPLATIN [Concomitant]
     Indication: PAIN
     Dosage: UNK
  3. OXYCODONE/ACETAMINOPHEN [Suspect]
     Indication: ARTHRALGIA
     Dosage: 5/325 MG, ONE Q 6 HOURS
     Dates: start: 20120201
  4. HYDROCHLOROTHIAZIDE [Concomitant]
     Indication: FLUID RETENTION
     Dosage: 12.5 MG
  5. ATENOLOL [Concomitant]
     Indication: HYPERTENSION
     Dosage: 25 MG
  6. PAXIL [Concomitant]
     Indication: DEPRESSION
     Dosage: 30 MG

REACTIONS (2)
  - DRUG SCREEN NEGATIVE [None]
  - DRUG EFFECT DECREASED [None]
